FAERS Safety Report 8991157 (Version 1)
Quarter: 2012Q4

REPORT INFORMATION
  Report Type: Spontaneous
  Country: US (occurrence: None)
  Receive Date: 20121219
  Receipt Date: 20121219
  Transmission Date: 20130627
  Serious: No
  Sender: FDA-Public Use
  Company Number: VAL_01182_2012

PATIENT
  Age: 75 Year

DRUGS (3)
  1. LOTENSIN [Suspect]
     Indication: HYPERTENSION
     Dosage: (DF)
     Dates: start: 200905
  2. NIFEDIPINE [Suspect]
     Indication: HYPERTENSION
     Dates: start: 2009
  3. TERAZOSIN [Suspect]
     Indication: HYPERTENSION
     Dosage: (DF)
     Dates: start: 200905

REACTIONS (6)
  - GALL BLADDER SURGERY [None]
  - Cholecystectomy [None]
  - Blood pressure inadequately controlled [None]
  - Diarrhoea [None]
  - Drug ineffective [None]
  - Product quality issue [None]
